FAERS Safety Report 19860055 (Version 1)
Quarter: 2021Q3

REPORT INFORMATION
  Report Type: Spontaneous
  Country: GB (occurrence: GB)
  Receive Date: 20210920
  Receipt Date: 20210920
  Transmission Date: 20211014
  Serious: Yes (Death, Other)
  Sender: FDA-Public Use
  Company Number: NVSC2021GB212279

PATIENT

DRUGS (2)
  1. TRAMETINIB [Suspect]
     Active Substance: TRAMETINIB
     Indication: PRODUCT USED FOR UNKNOWN INDICATION
     Dosage: UNK
     Route: 065
  2. DABRAFENIB [Suspect]
     Active Substance: DABRAFENIB
     Indication: PRODUCT USED FOR UNKNOWN INDICATION
     Dosage: UNK
     Route: 065

REACTIONS (15)
  - Uveitis [Unknown]
  - Nausea [Unknown]
  - Dry skin [Unknown]
  - Aphasia [Unknown]
  - Neoplasm [Unknown]
  - Headache [Recovered/Resolved]
  - Oedema peripheral [Unknown]
  - Death [Fatal]
  - Myopathy [Unknown]
  - Dysphonia [Unknown]
  - Eye disorder [Unknown]
  - Pyrexia [Unknown]
  - Metastases to central nervous system [Unknown]
  - Metastases to liver [Unknown]
  - General physical health deterioration [Unknown]

NARRATIVE: CASE EVENT DATE: 202103
